FAERS Safety Report 6062224-X (Version None)
Quarter: 2009Q1

REPORT INFORMATION
  Report Type: 
  Country: None (occurrence: None)
  Receive Date: 20090203
  Receipt Date: 20090128
  Transmission Date: 20090719
  Serious: Yes (Other)
  Sender: FDA-Public Use
  Company Number: CA-ASTRAZENECA-2009UW02590

PATIENT

DRUGS (8)
  1. XYLOCAINE VISCOUS [Suspect]
     Route: 061
     Dates: start: 20090101
  2. ALDACTONE [Concomitant]
     Route: 048
  3. HALDOL [Concomitant]
  4. LIBRIUM [Concomitant]
  5. OMEPRAZOLE [Concomitant]
     Route: 048
  6. MAALOX [Concomitant]
  7. MOTILIUM [Concomitant]
     Route: 048
  8. SULCRATE [Concomitant]

REACTIONS (3)
  - ACCIDENTAL OVERDOSE [None]
  - CONFUSIONAL STATE [None]
  - HALLUCINATION [None]
